FAERS Safety Report 11338839 (Version 1)
Quarter: 2015Q3

REPORT INFORMATION
  Report Type: Spontaneous
  Country: US (occurrence: US)
  Receive Date: 20150803
  Receipt Date: 20150803
  Transmission Date: 20151125
  Serious: No
  Sender: FDA-Public Use
  Company Number: US-ELI_LILLY_AND_COMPANY-US200809002161

PATIENT
  Sex: Male

DRUGS (5)
  1. STRATTERA [Suspect]
     Active Substance: ATOMOXETINE HYDROCHLORIDE
     Dosage: 10 MG, UNK
     Dates: start: 20080811, end: 20080817
  2. PROZAC [Concomitant]
     Active Substance: FLUOXETINE HYDROCHLORIDE
     Indication: DEPRESSION
     Dosage: 10 MG, UNK
  3. STRATTERA [Suspect]
     Active Substance: ATOMOXETINE HYDROCHLORIDE
     Dosage: 18 MG, UNK
     Dates: start: 20080818, end: 20080824
  4. STRATTERA [Suspect]
     Active Substance: ATOMOXETINE HYDROCHLORIDE
     Dosage: 25 MG, UNK
     Dates: start: 20080825, end: 20080904
  5. STRATTERA [Suspect]
     Active Substance: ATOMOXETINE HYDROCHLORIDE
     Dosage: 25 MG, UNK
     Dates: start: 20080906, end: 20080908

REACTIONS (1)
  - Migraine [Recovered/Resolved]

NARRATIVE: CASE EVENT DATE: 20080904
